FAERS Safety Report 14850564 (Version 2)
Quarter: 2018Q2

REPORT INFORMATION
  Report Type: Spontaneous
  Country: US (occurrence: US)
  Receive Date: 20180506
  Receipt Date: 20180614
  Transmission Date: 20180711
  Serious: No
  Sender: FDA-Public Use
  Company Number: US-ASTRAZENECA-2018SE45315

PATIENT
  Sex: Female
  Weight: 98.9 kg

DRUGS (1)
  1. SYMBICORT [Suspect]
     Active Substance: BUDESONIDE\FORMOTEROL FUMARATE DIHYDRATE
     Indication: CHRONIC OBSTRUCTIVE PULMONARY DISEASE
     Dosage: TWO TIMES A DAY, 160/4.5 MCG
     Route: 055

REACTIONS (7)
  - Wrong technique in product usage process [Unknown]
  - Intentional product misuse [Unknown]
  - Product use issue [Recovered/Resolved]
  - Device issue [Recovered/Resolved]
  - Body height decreased [Unknown]
  - Underdose [Not Recovered/Not Resolved]
  - Off label use [Recovered/Resolved]
